FAERS Safety Report 14704713 (Version 2)
Quarter: 2018Q2

REPORT INFORMATION
  Report Type: Spontaneous
  Country: IT (occurrence: IT)
  Receive Date: 20180402
  Receipt Date: 20180406
  Transmission Date: 20180711
  Serious: Yes (Death, Other)
  Sender: FDA-Public Use
  Company Number: IT-OTSUKA-2018_008001

PATIENT

DRUGS (6)
  1. AZATHIOPRIN [Suspect]
     Active Substance: AZATHIOPRINE
     Indication: BONE MARROW CONDITIONING REGIMEN
     Dosage: FROM DAY -59 PRETRANSPLANT
     Route: 065
  2. THIOTEPA. [Suspect]
     Active Substance: THIOTEPA
     Indication: BONE MARROW CONDITIONING REGIMEN
     Dosage: UNK, UNKNOWN
     Route: 065
  3. FLUDARABINE [Suspect]
     Active Substance: FLUDARABINE PHOSPHATE
     Indication: BONE MARROW CONDITIONING REGIMEN
     Dosage: FROM DAY -17 THROUGH DAY -12 PRETRANSPLANT
     Route: 065
  4. BUSULFAN. [Suspect]
     Active Substance: BUSULFAN
     Indication: BONE MARROW CONDITIONING REGIMEN
     Dosage: UNK UNK, UNKNOWN
     Route: 065
  5. HYDROXYUREA. [Suspect]
     Active Substance: HYDROXYUREA
     Indication: BONE MARROW CONDITIONING REGIMEN
     Dosage: FROM DAY -59 PRETRANSPLANT
     Route: 065
  6. CYCLOPHOSPHAMIDE. [Suspect]
     Active Substance: CYCLOPHOSPHAMIDE
     Indication: BONE MARROW CONDITIONING REGIMEN
     Dosage: UNK, UNKNOWN
     Route: 065

REACTIONS (22)
  - B-cell lymphoma [Fatal]
  - Post procedural sepsis [Fatal]
  - Anal abscess [Fatal]
  - Immune thrombocytopenic purpura [Unknown]
  - Cytomegalovirus infection [Unknown]
  - Adenovirus infection [Unknown]
  - Fungal infection [Unknown]
  - Sepsis [Unknown]
  - Graft versus host disease [Unknown]
  - Cardiac failure acute [Fatal]
  - Infection [Fatal]
  - Transplant failure [Unknown]
  - Epstein-Barr virus infection [Unknown]
  - Megacolon [Fatal]
  - Bacterial infection [Unknown]
  - Graft versus host disease [Fatal]
  - Pneumonia [Fatal]
  - Aspergillus infection [Fatal]
  - Epstein-Barr virus associated lymphoproliferative disorder [Unknown]
  - Autoimmune haemolytic anaemia [Unknown]
  - Infection reactivation [Unknown]
  - Viral haemorrhagic cystitis [Unknown]
